FAERS Safety Report 9493241 (Version 2)
Quarter: 2013Q3

REPORT INFORMATION
  Report Type: Spontaneous
  Country: BR (occurrence: BR)
  Receive Date: 20130902
  Receipt Date: 20130902
  Transmission Date: 20140515
  Serious: Yes (Other)
  Sender: FDA-Public Use
  Company Number: PHHY2013BR082905

PATIENT
  Sex: Male
  Weight: 50 kg

DRUGS (8)
  1. TRILEPTAL [Suspect]
     Indication: CONVULSION
     Dosage: 2.5 ML, Q12H
     Route: 048
  2. TRILEPTAL [Suspect]
     Dosage: PROGRESSIVELY INCREASED
     Route: 048
  3. TRILEPTAL [Suspect]
     Dosage: 10 ML, UNK
     Route: 048
  4. TRILEPTAL [Suspect]
     Dosage: PROGRESSIVELY DECREASED
  5. DIAZEPAM [Suspect]
     Indication: CONVULSION
     Dosage: 1.5 DF, QD
  6. GARDENAL//PHENOBARBITAL [Suspect]
     Indication: CONVULSION
     Dosage: 3 DF, QD
  7. HIDANTAL [Suspect]
     Indication: CONVULSION
     Dosage: 2 DF, QD
  8. NEULEPTIL [Suspect]
     Indication: AGGRESSION
     Dosage: UNK UKN, UNK

REACTIONS (18)
  - Swelling [Recovered/Resolved]
  - Convulsion [Not Recovered/Not Resolved]
  - Eating disorder [Recovered/Resolved]
  - Aggression [Not Recovered/Not Resolved]
  - Speech disorder [Recovered/Resolved]
  - Coordination abnormal [Recovered/Resolved]
  - Balance disorder [Recovered/Resolved]
  - Fall [Recovered/Resolved]
  - Amnesia [Recovered/Resolved]
  - Memory impairment [Recovered/Resolved]
  - Somnolence [Recovered/Resolved]
  - Fatigue [Recovered/Resolved]
  - Headache [Recovered/Resolved]
  - Dizziness [Recovered/Resolved]
  - Vomiting [Recovered/Resolved]
  - Decreased appetite [Recovered/Resolved]
  - Swelling face [Recovered/Resolved]
  - Irritability [Recovered/Resolved]
